FAERS Safety Report 6962515-1 (Version None)
Quarter: 2010Q3

REPORT INFORMATION
  Report Type: 
  Country: None (occurrence: None)
  Receive Date: 20100902
  Receipt Date: 20100823
  Transmission Date: 20110219
  Serious: Yes (Other)
  Sender: FDA-Public Use
  Company Number: US-JNJFOC-20100601481

PATIENT
  Sex: Female

DRUGS (2)
  1. LEVAQUIN [Suspect]
     Indication: COUGH
     Route: 048
  2. LEVAQUIN [Suspect]
     Indication: NASOPHARYNGITIS
     Route: 048

REACTIONS (4)
  - IMMOBILE [None]
  - MUSCULAR WEAKNESS [None]
  - PAIN [None]
  - TENDONITIS [None]
